FAERS Safety Report 4316459-4 (Version None)
Quarter: 2004Q1

REPORT INFORMATION
  Report Type: 
  Country: None (occurrence: None)
  Receive Date: 20040311
  Receipt Date: 19990120
  Transmission Date: 20041129
  Serious: Yes (Hospitalization)
  Sender: FDA-Public Use
  Company Number: 1998-NL-10136

PATIENT
  Age: 71 Year
  Sex: Female

DRUGS (2)
  1. BIBR 277 SE [Concomitant]
     Indication: HYPERTENSION
     Dosage: 80 MG (, ONCE DAILY) PO
     Route: 048
     Dates: start: 19980515, end: 19981001
  2. MIXTARD HUMAN 70/30 [Suspect]

REACTIONS (4)
  - BRONCHITIS [None]
  - FLUID RETENTION [None]
  - LARYNGITIS [None]
  - VASCULITIS [None]
